FAERS Safety Report 19420560 (Version 1)
Quarter: 2021Q2

REPORT INFORMATION
  Report Type: Spontaneous
  Country: CA (occurrence: CA)
  Receive Date: 20210616
  Receipt Date: 20210616
  Transmission Date: 20210717
  Serious: Yes (Other)
  Sender: FDA-Public Use
  Company Number: CA-TEVA-2021-CA-1921431

PATIENT
  Age: 48 Year
  Sex: Male

DRUGS (20)
  1. HYDROMORPHONE [Suspect]
     Active Substance: HYDROMORPHONE
     Indication: PAIN
     Route: 065
  2. HYDROMORPHONE [Suspect]
     Active Substance: HYDROMORPHONE
     Indication: ANALGESIC THERAPY
  3. EPINEPHRINE. [Suspect]
     Active Substance: EPINEPHRINE
     Indication: EPIDURAL ANALGESIA
     Route: 008
  4. KETAMINE [Suspect]
     Active Substance: KETAMINE
     Indication: ANALGESIC THERAPY
     Route: 042
  5. KETAMINE [Suspect]
     Active Substance: KETAMINE
     Indication: INDUCTION OF ANAESTHESIA
     Route: 042
  6. MORPHINE [Suspect]
     Active Substance: MORPHINE
     Indication: PAIN
     Dosage: 500 MILLIGRAM DAILY;
     Route: 048
  7. BUPIVACAINE. [Suspect]
     Active Substance: BUPIVACAINE
     Indication: EPIDURAL ANALGESIA
     Route: 008
  8. HYDROMORPHONE [Suspect]
     Active Substance: HYDROMORPHONE
     Indication: PAIN
     Route: 042
  9. HYDROMORPHONE [Suspect]
     Active Substance: HYDROMORPHONE
     Route: 008
  10. KETAMINE [Suspect]
     Active Substance: KETAMINE
     Dosage: 4.8 MILLIGRAM DAILY;
     Route: 042
  11. OXYCODONE [Suspect]
     Active Substance: OXYCODONE
     Indication: PAIN
     Route: 065
  12. BUPIVACAINE. [Suspect]
     Active Substance: BUPIVACAINE
     Route: 008
  13. HYDROMORPHONE [Suspect]
     Active Substance: HYDROMORPHONE
     Indication: ANALGESIC THERAPY
     Route: 008
  14. MORPHINE [Suspect]
     Active Substance: MORPHINE
     Indication: PAIN
     Route: 008
  15. MORPHINE [Suspect]
     Active Substance: MORPHINE
     Dosage: 350 MILLIGRAM DAILY;
     Route: 048
  16. HYDROMORPHONE [Suspect]
     Active Substance: HYDROMORPHONE
     Route: 042
  17. HYDROMORPHONE [Suspect]
     Active Substance: HYDROMORPHONE
     Route: 042
  18. KETAMINE [Suspect]
     Active Substance: KETAMINE
     Route: 042
  19. HYDROMORPH CONTIN [Suspect]
     Active Substance: HYDROMORPHONE
     Indication: PAIN
     Route: 065
  20. KETAMINE [Suspect]
     Active Substance: KETAMINE
     Dosage: 7.2 MG/KG DAILY;
     Route: 042

REACTIONS (4)
  - Pain [Unknown]
  - Drug dependence [Unknown]
  - Abdominal discomfort [Unknown]
  - Hyperaesthesia [Unknown]
